FAERS Safety Report 6715553-8 (Version None)
Quarter: 2010Q2

REPORT INFORMATION
  Report Type: 
  Country: None (occurrence: None)
  Receive Date: 20100507
  Receipt Date: 20100428
  Transmission Date: 20101027
  Serious: Yes (Hospitalization, Disabling)
  Sender: FDA-Public Use
  Company Number: GB-ROCHE-640329

PATIENT
  Sex: Female
  Weight: 68 kg

DRUGS (16)
  1. BEVACIZUMAB [Suspect]
     Dosage: LAST DOSE PRIOR TO SAE: 29/01/2008
     Route: 042
     Dates: start: 20071010
  2. BEVACIZUMAB [Suspect]
     Dosage: THE PATIENT RECEIVED MEDICATIONS UNTIL CYCLE 18- 26 AUGUST 2008.
     Route: 042
     Dates: end: 20080826
  3. PACLITAXEL [Suspect]
     Dosage: LAST DOSE PRIOR TO SAE: 29/01/2008
     Route: 042
     Dates: start: 20071012
  4. PACLITAXEL [Suspect]
     Dosage: THE PATIENT RECEIVED MEDICATIONS UNTIL CYCLE 18- 26 AUGUST 2008.
     Route: 042
     Dates: end: 20080826
  5. CARBOPLATIN [Suspect]
     Dosage: LAST DOSE PRIOR TO SAE; 26/AUG/2008
     Route: 042
     Dates: start: 20071012
  6. CARBOPLATIN [Suspect]
     Dosage: THE PATIENT RECEIVED MEDICATIONS UNTIL CYCLE 18- 26 AUGUST 2008.
     Route: 042
     Dates: end: 20080826
  7. ATENOLOL [Suspect]
     Indication: DRUG USE FOR UNKNOWN INDICATION
     Route: 048
     Dates: start: 20080826, end: 20090120
  8. NIFEDIPINE [Concomitant]
     Route: 048
  9. PARACETAMOL [Concomitant]
     Route: 048
  10. FELODIPINE [Concomitant]
     Route: 048
  11. BENDROFLUMETHIAZIDE [Concomitant]
     Route: 048
  12. BENDROFLUMETHIAZIDE [Concomitant]
     Route: 048
     Dates: start: 20080804
  13. BETAHISTINE [Concomitant]
     Route: 048
     Dates: start: 20080428, end: 20090120
  14. BETAHISTINE [Concomitant]
     Route: 048
  15. PREDNISOLONE [Concomitant]
     Route: 048
     Dates: start: 20090427
  16. CALCIUM [Concomitant]
     Route: 048
     Dates: start: 20090427

REACTIONS (2)
  - MYOCARDIAL INFARCTION [None]
  - SCLERODERMA [None]
